FAERS Safety Report 14152613 (Version 2)
Quarter: 2018Q3

REPORT INFORMATION
  Report Type: Spontaneous
  Country: ES (occurrence: CZ)
  Receive Date: 20171102
  Receipt Date: 20180723
  Transmission Date: 20181010
  Serious: Yes (Other)
  Sender: FDA-Public Use
  Company Number: ES-APOPHARMA USA, INC.-2017AP020882

PATIENT
  Age: 70 Year
  Sex: Female
  Weight: 87 kg

DRUGS (15)
  1. NITRENDIPINUM [Concomitant]
     Indication: PRODUCT USED FOR UNKNOWN INDICATION
     Dosage: UNK
     Route: 065
     Dates: end: 20140530
  2. CALCIUM [Concomitant]
     Active Substance: CALCIUM
     Indication: PRODUCT USED FOR UNKNOWN INDICATION
     Dosage: UNK
     Route: 065
     Dates: start: 20140530, end: 20140603
  3. TRAMADOLI HYDROCHLORIDUM [Concomitant]
     Indication: PRODUCT USED FOR UNKNOWN INDICATION
     Dosage: UNK
     Route: 065
  4. ASPIRIN. [Concomitant]
     Active Substance: ASPIRIN
     Dosage: UNK
     Route: 065
  5. ASPIRIN. [Concomitant]
     Active Substance: ASPIRIN
     Indication: PRODUCT USED FOR UNKNOWN INDICATION
     Dosage: UNK
     Route: 065
  6. PERINDOPRILUM [Concomitant]
     Indication: PRODUCT USED FOR UNKNOWN INDICATION
     Dosage: UNK
     Route: 065
     Dates: end: 20140530
  7. ALKERAN [Suspect]
     Active Substance: MELPHALAN
     Indication: PLASMA CELL MYELOMA
     Dosage: 12 MG, OTHER
     Route: 048
     Dates: start: 20140521, end: 20140524
  8. FUROSEMIDUM                        /00032601/ [Concomitant]
     Indication: PRODUCT USED FOR UNKNOWN INDICATION
     Dosage: UNK
     Route: 065
  9. FUROSEMIDUM                        /00032601/ [Concomitant]
     Dosage: UNK
     Route: 065
     Dates: start: 20140601, end: 20140602
  10. PREDNISONE. [Suspect]
     Active Substance: PREDNISONE
     Indication: PLASMA CELL MYELOMA
     Dosage: 110 MG, OTHER
     Route: 048
     Dates: start: 20140521, end: 20140524
  11. IXAZOMIB [Suspect]
     Active Substance: IXAZOMIB
     Indication: PLASMA CELL MYELOMA
     Dosage: 4 MG, OTHER
     Route: 048
     Dates: start: 20140521, end: 20140604
  12. IXAZOMIB [Suspect]
     Active Substance: IXAZOMIB
     Dosage: UNK
  13. TRAMADOLI HYDROCHLORIDUM [Concomitant]
     Dosage: UNK
     Route: 065
     Dates: start: 20140530, end: 20140605
  14. ACICLOVIR [Concomitant]
     Active Substance: ACYCLOVIR
     Indication: PRODUCT USED FOR UNKNOWN INDICATION
     Dosage: UNK
     Route: 065
     Dates: start: 20140521
  15. ROSUVASTATIN CALCIUM. [Concomitant]
     Active Substance: ROSUVASTATIN CALCIUM
     Indication: PRODUCT USED FOR UNKNOWN INDICATION
     Dosage: UNK
     Route: 065

REACTIONS (6)
  - Circulatory collapse [Recovered/Resolved]
  - Renal failure [Unknown]
  - Hypotension [Unknown]
  - Thrombocytopenia [Unknown]
  - Asthenia [Recovered/Resolved]
  - Hypokalaemia [Unknown]

NARRATIVE: CASE EVENT DATE: 20140610
